FAERS Safety Report 12701541 (Version 1)
Quarter: 2016Q3

REPORT INFORMATION
  Report Type: Spontaneous
  Country: US (occurrence: None)
  Receive Date: 20160830
  Receipt Date: 20160830
  Transmission Date: 20161109
  Serious: No
  Sender: FDA-Public Use
  Company Number: None

PATIENT
  Age: 10 Year
  Sex: Male

DRUGS (1)
  1. XOLAIR [Suspect]
     Active Substance: OMALIZUMAB
     Indication: URTICARIA
     Dosage: 150 MG  EVERY 4 WEEKS SUBCUTANEOUS
     Route: 058
     Dates: start: 20160628

REACTIONS (3)
  - Injection site pain [None]
  - No reaction on previous exposure to drug [None]
  - Injection site urticaria [None]
